FAERS Safety Report 5862889-9 (Version None)
Quarter: 2008Q3

REPORT INFORMATION
  Report Type: 
  Country: None (occurrence: None)
  Receive Date: 20080828
  Receipt Date: 20080821
  Transmission Date: 20090109
  Serious: Yes (Hospitalization)
  Sender: FDA-Public Use
  Company Number: A0733209A

PATIENT
  Age: 53 Year
  Sex: Male
  Weight: 86.4 kg

DRUGS (11)
  1. AVANDAMET [Suspect]
     Route: 048
     Dates: start: 20030811, end: 20041016
  2. AVANDIA [Suspect]
     Dosage: 8MG PER DAY
     Route: 048
     Dates: start: 20050305, end: 20061004
  3. AVANDARYL [Suspect]
     Route: 065
     Dates: start: 20061005, end: 20071128
  4. FORTAMET [Concomitant]
  5. LIPITOR [Concomitant]
     Dosage: 10MG AT NIGHT
     Route: 048
     Dates: start: 20040816
  6. NEXIUM [Concomitant]
  7. GLUCOPHAGE [Concomitant]
  8. GLUCOTROL [Concomitant]
  9. VYTORIN [Concomitant]
     Dates: start: 20060814, end: 20060914
  10. LISINOPRIL [Concomitant]
  11. FORTAMET [Concomitant]
     Dates: start: 20040816

REACTIONS (4)
  - ACUTE MYOCARDIAL INFARCTION [None]
  - CARDIOMYOPATHY [None]
  - CORONARY ARTERY DISEASE [None]
  - PAIN [None]
